FAERS Safety Report 7486783-5 (Version None)
Quarter: 2011Q2

REPORT INFORMATION
  Report Type: 
  Country: None (occurrence: None)
  Receive Date: 20110517
  Receipt Date: 20100528
  Transmission Date: 20111010
  Serious: No
  Sender: FDA-Public Use
  Company Number: US-NOVEN-ALL1-2010-03146

PATIENT

DRUGS (4)
  1. MELATONIN [Concomitant]
     Dosage: UNK, 1X/DAY:QD
     Route: 048
  2. DAYTRANA [Suspect]
     Dosage: 15 MG, 1X/DAY:QD
     Route: 062
     Dates: start: 20100101
  3. DAYTRANA [Suspect]
  4. GEODON [Concomitant]
     Dosage: 80 MG, UNKNOWN
     Route: 048

REACTIONS (6)
  - INCREASED APPETITE [None]
  - PRODUCT QUALITY ISSUE [None]
  - WRONG TECHNIQUE IN DRUG USAGE PROCESS [None]
  - APPLICATION SITE ERYTHEMA [None]
  - AGITATION [None]
  - DRUG ADMINISTERED AT INAPPROPRIATE SITE [None]
